FAERS Safety Report 25864948 (Version 2)
Quarter: 2025Q4

REPORT INFORMATION
  Report Type: Spontaneous
  Country: US (occurrence: US)
  Receive Date: 20250930
  Receipt Date: 20251008
  Transmission Date: 20260118
  Serious: Yes (Other)
  Sender: OTSUKA
  Company Number: US-MMM-Otsuka-QOJ54FX0

PATIENT
  Age: 38 Year
  Sex: Female

DRUGS (4)
  1. NUEDEXTA [Suspect]
     Active Substance: DEXTROMETHORPHAN HYDROBROMIDE\QUINIDINE SULFATE
     Indication: Affect lability
     Dosage: 2 DF, DAILY
  2. NUEDEXTA [Suspect]
     Active Substance: DEXTROMETHORPHAN HYDROBROMIDE\QUINIDINE SULFATE
     Indication: Obsessive-compulsive disorder
     Dosage: 3 DF (20-10 MG), DAILY (TWO CAPSULES IN THE MORNING AND ONE AT BEDTIME)
  3. NUEDEXTA [Suspect]
     Active Substance: DEXTROMETHORPHAN HYDROBROMIDE\QUINIDINE SULFATE
     Indication: Intermittent explosive disorder
     Dosage: 5 DF, DAILY
  4. NUEDEXTA [Suspect]
     Active Substance: DEXTROMETHORPHAN HYDROBROMIDE\QUINIDINE SULFATE
     Indication: Anxiety

REACTIONS (10)
  - Self-destructive behaviour [Unknown]
  - Staring [Unknown]
  - Crying [Unknown]
  - Stereotypy [Unknown]
  - Inappropriate affect [Unknown]
  - Irritability [Unknown]
  - Obsessive-compulsive disorder [Unknown]
  - Emotional disorder [Unknown]
  - Off label use [Unknown]
  - Inability to afford medication [Unknown]
